FAERS Safety Report 19985384 (Version 1)
Quarter: 2021Q4

REPORT INFORMATION
  Report Type: Spontaneous
  Country: US (occurrence: US)
  Receive Date: 20211022
  Receipt Date: 20211022
  Transmission Date: 20220304
  Serious: Yes (Other)
  Sender: FDA-Public Use
  Company Number: None

PATIENT
  Age: 64 Year
  Sex: Female
  Weight: 95.85 kg

DRUGS (1)
  1. CARVEDILOL [Suspect]
     Active Substance: CARVEDILOL
     Indication: Blood pressure measurement
     Dosage: ?          QUANTITY:180 TABLET(S);
     Route: 048

REACTIONS (4)
  - Vomiting [None]
  - Nausea [None]
  - Abdominal pain [None]
  - Product coating issue [None]

NARRATIVE: CASE EVENT DATE: 20210915
